FAERS Safety Report 8612140-1 (Version None)
Quarter: 2012Q3

REPORT INFORMATION
  Report Type: 
  Country: None (occurrence: None)
  Receive Date: 20120822
  Receipt Date: 20120809
  Transmission Date: 20120928
  Serious: No
  Sender: FDA-Public Use
  Company Number: US-ASTRAZENECA-2012SE55672

PATIENT
  Age: 63 Year
  Sex: Female

DRUGS (1)
  1. TOPROL-XL [Suspect]
     Indication: MIGRAINE
     Route: 048

REACTIONS (5)
  - PANIC ATTACK [None]
  - MIGRAINE [None]
  - MALAISE [None]
  - DRUG DOSE OMISSION [None]
  - OFF LABEL USE [None]
